FAERS Safety Report 11745338 (Version 1)
Quarter: 2015Q4

REPORT INFORMATION
  Report Type: Spontaneous
  Country: US (occurrence: US)
  Receive Date: 20151117
  Receipt Date: 20151117
  Transmission Date: 20160304
  Serious: No
  Sender: FDA-Public Use
  Company Number: US-ASTRAZENECA-2015SF05396

PATIENT
  Age: 47 Year
  Sex: Female
  Weight: 79 kg

DRUGS (5)
  1. ARIMIDEX [Suspect]
     Active Substance: ANASTROZOLE
     Route: 048
  2. TAMOXIFEN [Concomitant]
     Active Substance: TAMOXIFEN
  3. SYNTHROID [Concomitant]
     Active Substance: LEVOTHYROXINE SODIUM
  4. EXEMESTANE. [Suspect]
     Active Substance: EXEMESTANE
     Indication: BREAST CANCER FEMALE
     Dosage: GENERIC, 25 MG DAILY
     Route: 048
     Dates: start: 2009, end: 20151007
  5. FEMARA [Concomitant]
     Active Substance: LETROZOLE

REACTIONS (6)
  - Hot flush [Not Recovered/Not Resolved]
  - Weight increased [Unknown]
  - Osteoporosis [Not Recovered/Not Resolved]
  - Intentional product use issue [Unknown]
  - Hyperthyroidism [Not Recovered/Not Resolved]
  - Osteopenia [Not Recovered/Not Resolved]

NARRATIVE: CASE EVENT DATE: 2004
